FAERS Safety Report 9892646 (Version 3)
Quarter: 2014Q1

REPORT INFORMATION
  Report Type: Spontaneous
  Country: US (occurrence: US)
  Receive Date: 20140212
  Receipt Date: 20140224
  Transmission Date: 20141002
  Serious: Yes (Other)
  Sender: FDA-Public Use
  Company Number: US-GILEAD-2014-0094313

PATIENT
  Sex: Female

DRUGS (4)
  1. LETAIRIS [Suspect]
     Indication: PULMONARY HYPERTENSION
     Dosage: 10 MG, QD
     Dates: start: 20120423
  2. LETAIRIS [Suspect]
     Indication: SCLERODERMA
  3. VENTAVIS [Concomitant]
  4. ADCIRCA [Concomitant]

REACTIONS (3)
  - Pneumonia [Unknown]
  - Blood pressure fluctuation [Unknown]
  - Bronchitis [Unknown]
